FAERS Safety Report 13460896 (Version 1)
Quarter: 2017Q2

REPORT INFORMATION
  Report Type: Report from Study
  Country: FR (occurrence: FR)
  Receive Date: 20170420
  Receipt Date: 20170420
  Transmission Date: 20170830
  Serious: Yes (Hospitalization)
  Sender: FDA-Public Use
  Company Number: FR-ROCHE-1262335

PATIENT
  Age: 55 Year
  Sex: Male
  Weight: 98 kg

DRUGS (84)
  1. CETRIZINE [Concomitant]
     Active Substance: CETIRIZINE HYDROCHLORIDE
     Route: 065
     Dates: start: 20121211
  2. DOLIPRANE [Concomitant]
     Active Substance: ACETAMINOPHEN
     Route: 065
     Dates: start: 20121211
  3. DOLIPRANE [Concomitant]
     Active Substance: ACETAMINOPHEN
     Route: 065
     Dates: start: 20120626
  4. METHYL PREDNISOLONE SODIUM SUCCINATE [Concomitant]
     Active Substance: METHYLPREDNISOLONE SODIUM SUCCINATE
     Route: 065
     Dates: start: 20131126
  5. BISOPROLOL [Concomitant]
     Active Substance: BISOPROLOL
     Indication: HYPERTENSION
     Route: 065
     Dates: start: 20120402
  6. PANTOPRAZOLE [Concomitant]
     Active Substance: PANTOPRAZOLE
     Indication: ULCER
     Route: 065
     Dates: start: 200506
  7. PAROXETINE. [Concomitant]
     Active Substance: PAROXETINE
     Indication: ANXIETY
     Route: 065
     Dates: start: 1998
  8. SITAGLIPTIN [Concomitant]
     Active Substance: SITAGLIPTIN
     Indication: DIABETES MELLITUS
     Route: 065
     Dates: start: 201109
  9. TAKETIAM [Concomitant]
     Indication: NASOPHARYNGITIS
     Route: 065
     Dates: start: 20130205, end: 20130212
  10. CETRIZINE [Concomitant]
     Active Substance: CETIRIZINE HYDROCHLORIDE
     Route: 065
     Dates: start: 20130107
  11. METHYL PREDNISOLONE SODIUM SUCCINATE [Concomitant]
     Active Substance: METHYLPREDNISOLONE SODIUM SUCCINATE
     Route: 065
     Dates: start: 20120709
  12. METHYL PREDNISOLONE SODIUM SUCCINATE [Concomitant]
     Active Substance: METHYLPREDNISOLONE SODIUM SUCCINATE
     Route: 065
     Dates: start: 20130528
  13. PARACETAMOL [Concomitant]
     Active Substance: ACETAMINOPHEN
     Indication: EAR INFECTION
     Route: 065
     Dates: start: 20120123
  14. PARACETAMOL [Concomitant]
     Active Substance: ACETAMINOPHEN
     Route: 065
     Dates: start: 20130129, end: 20130204
  15. ORELOX [Concomitant]
     Active Substance: CEFPODOXIME
     Indication: SINUSITIS
     Route: 065
     Dates: start: 20121106, end: 20121113
  16. PERMIXON [Concomitant]
     Active Substance: HERBALS\SAW PALMETTO
     Indication: DYSURIA
     Route: 065
     Dates: start: 200501, end: 20111213
  17. ULTRA LEVURE [Concomitant]
     Active Substance: SACCHAROMYCES CEREVISIAE
     Indication: DIARRHOEA
     Route: 065
     Dates: start: 20130129, end: 20130204
  18. OCRELIZUMAB [Suspect]
     Active Substance: OCRELIZUMAB
     Route: 042
     Dates: start: 20121211, end: 20121211
  19. OCRELIZUMAB [Suspect]
     Active Substance: OCRELIZUMAB
     Route: 042
     Dates: start: 20130107, end: 20130107
  20. OCRELIZUMAB [Suspect]
     Active Substance: OCRELIZUMAB
     Route: 042
     Dates: start: 20130528, end: 20130528
  21. OCRELIZUMAB [Suspect]
     Active Substance: OCRELIZUMAB
     Route: 042
     Dates: start: 20130611, end: 20130611
  22. OCRELIZUMAB [Suspect]
     Active Substance: OCRELIZUMAB
     Route: 042
     Dates: start: 20131126, end: 20131126
  23. OCRELIZUMAB [Suspect]
     Active Substance: OCRELIZUMAB
     Route: 042
     Dates: start: 20141014, end: 20141014
  24. FLAGYL [Concomitant]
     Active Substance: METRONIDAZOLE\METRONIDAZOLE HYDROCHLORIDE
     Indication: DIARRHOEA
     Route: 065
     Dates: start: 20120316, end: 20120330
  25. CETRIZINE [Concomitant]
     Active Substance: CETIRIZINE HYDROCHLORIDE
     Indication: PREMEDICATION
     Route: 065
     Dates: start: 20120626
  26. CETRIZINE [Concomitant]
     Active Substance: CETIRIZINE HYDROCHLORIDE
     Route: 065
     Dates: start: 20120123
  27. CETRIZINE [Concomitant]
     Active Substance: CETIRIZINE HYDROCHLORIDE
     Route: 065
     Dates: start: 20131126
  28. DOLIPRANE [Concomitant]
     Active Substance: ACETAMINOPHEN
     Route: 065
     Dates: start: 20131126
  29. METHYL PREDNISOLONE SODIUM SUCCINATE [Concomitant]
     Active Substance: METHYLPREDNISOLONE SODIUM SUCCINATE
     Indication: PREMEDICATION
     Route: 065
     Dates: start: 20130107
  30. METHYL PREDNISOLONE SODIUM SUCCINATE [Concomitant]
     Active Substance: METHYLPREDNISOLONE SODIUM SUCCINATE
     Route: 065
     Dates: start: 20120123
  31. PARACETAMOL [Concomitant]
     Active Substance: ACETAMINOPHEN
     Route: 065
     Dates: start: 20121019, end: 20121030
  32. TARDYFERON (FRANCE) [Concomitant]
     Active Substance: FERROUS SULFATE\GASTRIC MUCIN
     Route: 065
     Dates: start: 20130814
  33. OCRELIZUMAB [Suspect]
     Active Substance: OCRELIZUMAB
     Indication: PRIMARY PROGRESSIVE MULTIPLE SCLEROSIS
     Dosage: DUAL INFUSION OF BLINDED OCRELIZUMAB SEPARATED BY 14 DAYS, REPEATED EVERY 24 WEEKS.?ON 11/JUN/2013,
     Route: 042
     Dates: start: 20120110, end: 20120110
  34. OCRELIZUMAB [Suspect]
     Active Substance: OCRELIZUMAB
     Route: 042
     Dates: start: 20120626, end: 20120626
  35. OCRELIZUMAB [Suspect]
     Active Substance: OCRELIZUMAB
     Route: 042
     Dates: start: 20141028, end: 20141028
  36. DOLIPRANE [Concomitant]
     Active Substance: ACETAMINOPHEN
     Indication: PREMEDICATION
     Route: 065
     Dates: start: 20130107
  37. DOLIPRANE [Concomitant]
     Active Substance: ACETAMINOPHEN
     Dosage: REPORTED AS DAFALGAN.
     Route: 065
     Dates: start: 20140513
  38. METHYL PREDNISOLONE SODIUM SUCCINATE [Concomitant]
     Active Substance: METHYLPREDNISOLONE SODIUM SUCCINATE
     Route: 065
     Dates: start: 20120626
  39. INSULIN GLARGINE [Concomitant]
     Active Substance: INSULIN GLARGINE
     Indication: DIABETES MELLITUS
     Route: 065
     Dates: start: 201109
  40. OFLOCET [Concomitant]
     Active Substance: OFLOXACIN
     Indication: EAR INFECTION
     Route: 065
     Dates: start: 20121019, end: 20121030
  41. PRAVASTATIN. [Concomitant]
     Active Substance: PRAVASTATIN
     Indication: HYPERCHOLESTEROLAEMIA
     Route: 065
     Dates: start: 200506
  42. CETRIZINE [Concomitant]
     Active Substance: CETIRIZINE HYDROCHLORIDE
     Route: 065
     Dates: start: 20130528
  43. CETRIZINE [Concomitant]
     Active Substance: CETIRIZINE HYDROCHLORIDE
     Route: 065
     Dates: start: 20131112
  44. DOLIPRANE [Concomitant]
     Active Substance: ACETAMINOPHEN
     Route: 065
     Dates: start: 20130528
  45. METHYL PREDNISOLONE SODIUM SUCCINATE [Concomitant]
     Active Substance: METHYLPREDNISOLONE SODIUM SUCCINATE
     Route: 065
     Dates: start: 20121211
  46. METHYL PREDNISOLONE SODIUM SUCCINATE [Concomitant]
     Active Substance: METHYLPREDNISOLONE SODIUM SUCCINATE
     Route: 065
     Dates: start: 20130611
  47. PARACETAMOL [Concomitant]
     Active Substance: ACETAMINOPHEN
     Indication: NASOPHARYNGITIS
     Route: 065
     Dates: start: 20120110
  48. ACETYLSALICYLIC ACID [Concomitant]
     Active Substance: ASPIRIN
     Indication: ANGINA PECTORIS
     Route: 065
     Dates: start: 200506
  49. IMODIUM [Concomitant]
     Active Substance: LOPERAMIDE HYDROCHLORIDE
     Indication: DIARRHOEA
     Route: 065
     Dates: start: 20120128, end: 20120130
  50. TARDYFERON (FRANCE) [Concomitant]
     Active Substance: FERROUS SULFATE\GASTRIC MUCIN
     Indication: IRON DEFICIENCY ANAEMIA
     Route: 065
     Dates: start: 20130705, end: 20130813
  51. OCRELIZUMAB [Suspect]
     Active Substance: OCRELIZUMAB
     Route: 042
     Dates: start: 20120123, end: 20120123
  52. OCRELIZUMAB [Suspect]
     Active Substance: OCRELIZUMAB
     Route: 042
     Dates: start: 20131112, end: 20131112
  53. CETRIZINE [Concomitant]
     Active Substance: CETIRIZINE HYDROCHLORIDE
     Route: 065
     Dates: start: 20130611
  54. CETRIZINE [Concomitant]
     Active Substance: CETIRIZINE HYDROCHLORIDE
     Route: 065
     Dates: start: 20140429
  55. DOLIPRANE [Concomitant]
     Active Substance: ACETAMINOPHEN
     Route: 065
     Dates: start: 20130611
  56. METHYL PREDNISOLONE SODIUM SUCCINATE [Concomitant]
     Active Substance: METHYLPREDNISOLONE SODIUM SUCCINATE
     Route: 065
     Dates: start: 20120110
  57. AUGMENTIN [Concomitant]
     Active Substance: AMOXICILLIN\CLAVULANATE POTASSIUM
     Indication: NASOPHARYNGITIS
     Route: 065
     Dates: start: 20130129, end: 20130204
  58. BISOPROLOL [Concomitant]
     Active Substance: BISOPROLOL
     Route: 065
     Dates: start: 20050715, end: 20120402
  59. FAMPRIDINE [Concomitant]
     Active Substance: DALFAMPRIDINE
     Indication: GAIT DISTURBANCE
     Route: 065
     Dates: start: 20130612
  60. PYOSTACINE [Concomitant]
     Active Substance: PRISTINAMYCIN
     Dosage: END DATE: 14/NOV/2013
     Route: 065
     Dates: start: 20131107
  61. EZETIMIBE. [Concomitant]
     Active Substance: EZETIMIBE
     Indication: HYPERCHOLESTEROLAEMIA
     Route: 065
     Dates: start: 200506
  62. CETRIZINE [Concomitant]
     Active Substance: CETIRIZINE HYDROCHLORIDE
     Route: 065
     Dates: start: 20120110
  63. CETRIZINE [Concomitant]
     Active Substance: CETIRIZINE HYDROCHLORIDE
     Route: 065
     Dates: start: 20140513
  64. METHYL PREDNISOLONE SODIUM SUCCINATE [Concomitant]
     Active Substance: METHYLPREDNISOLONE SODIUM SUCCINATE
     Route: 065
     Dates: start: 20131112
  65. METHYL PREDNISOLONE SODIUM SUCCINATE [Concomitant]
     Active Substance: METHYLPREDNISOLONE SODIUM SUCCINATE
     Route: 065
     Dates: start: 20140429
  66. METHYL PREDNISOLONE SODIUM SUCCINATE [Concomitant]
     Active Substance: METHYLPREDNISOLONE SODIUM SUCCINATE
     Route: 065
     Dates: start: 20140513
  67. AUGMENTIN [Concomitant]
     Active Substance: AMOXICILLIN\CLAVULANATE POTASSIUM
     Indication: RHINITIS
     Route: 065
     Dates: start: 20130502, end: 20130507
  68. AUGMENTIN [Concomitant]
     Active Substance: AMOXICILLIN\CLAVULANATE POTASSIUM
     Indication: EAR INFECTION
     Route: 065
     Dates: start: 20121019, end: 20121030
  69. EXOMUC [Concomitant]
     Active Substance: ACETYLCYSTEINE
     Indication: SINUSITIS
     Route: 065
     Dates: start: 20121106, end: 20121113
  70. AMAREL [Concomitant]
     Active Substance: GLIMEPIRIDE
     Indication: DIABETES MELLITUS
     Route: 065
     Dates: start: 2007, end: 20131201
  71. AMAREL [Concomitant]
     Active Substance: GLIMEPIRIDE
     Route: 065
     Dates: start: 20131202, end: 201404
  72. INSULIN [Concomitant]
     Active Substance: INSULIN NOS
     Indication: DIABETES MELLITUS
     Route: 065
     Dates: start: 200810
  73. METFORMIN [Concomitant]
     Active Substance: METFORMIN HYDROCHLORIDE
     Indication: DIABETES MELLITUS
     Route: 065
     Dates: start: 2006
  74. PYOSTACINE [Concomitant]
     Active Substance: PRISTINAMYCIN
     Indication: PYREXIA
     Route: 065
     Dates: start: 20130607, end: 20130612
  75. SMECTA [Concomitant]
     Active Substance: MONTMORILLONITE
     Indication: DIARRHOEA
     Route: 065
     Dates: start: 20120128, end: 20120130
  76. OCRELIZUMAB [Suspect]
     Active Substance: OCRELIZUMAB
     Route: 042
     Dates: start: 20120709, end: 20120709
  77. OCRELIZUMAB [Suspect]
     Active Substance: OCRELIZUMAB
     Route: 042
     Dates: start: 20140429, end: 20140429
  78. CETRIZINE [Concomitant]
     Active Substance: CETIRIZINE HYDROCHLORIDE
     Route: 065
     Dates: start: 20120709
  79. DOLIPRANE [Concomitant]
     Active Substance: ACETAMINOPHEN
     Route: 065
     Dates: start: 20120709
  80. DOLIPRANE [Concomitant]
     Active Substance: ACETAMINOPHEN
     Route: 065
     Dates: start: 20131112
  81. DOLIPRANE [Concomitant]
     Active Substance: ACETAMINOPHEN
     Route: 065
     Dates: start: 20140429
  82. DOLIPRANE [Concomitant]
     Active Substance: ACETAMINOPHEN
     Indication: PYREXIA
     Route: 065
     Dates: start: 20130607, end: 20130608
  83. AMAREL [Concomitant]
     Active Substance: GLIMEPIRIDE
     Route: 065
     Dates: start: 201404
  84. OCRELIZUMAB [Suspect]
     Active Substance: OCRELIZUMAB
     Route: 042
     Dates: start: 20140513, end: 20140513

REACTIONS (1)
  - Viral pericarditis [Recovered/Resolved]

NARRATIVE: CASE EVENT DATE: 20130704
